FAERS Safety Report 13870520 (Version 3)
Quarter: 2017Q4

REPORT INFORMATION
  Report Type: Report from Study
  Country: US (occurrence: US)
  Receive Date: 20170815
  Receipt Date: 20171002
  Transmission Date: 20180320
  Serious: No
  Sender: FDA-Public Use
  Company Number: US-AMGEN-USASL2017121391

PATIENT
  Age: 68 Year
  Sex: Female

DRUGS (1)
  1. ENBREL [Suspect]
     Active Substance: ETANERCEPT
     Indication: PSORIATIC ARTHROPATHY
     Dosage: 25 MG, QWK
     Route: 065

REACTIONS (7)
  - Injection site pruritus [Unknown]
  - Injection site discharge [Recovered/Resolved]
  - Urinary tract infection [Unknown]
  - Sinusitis [Unknown]
  - Injection site erythema [Unknown]
  - Injection site swelling [Unknown]
  - Off label use [Unknown]
